FAERS Safety Report 8615722-6 (Version None)
Quarter: 2012Q3

REPORT INFORMATION
  Report Type: 
  Country: None (occurrence: None)
  Receive Date: 20120823
  Receipt Date: 20120814
  Transmission Date: 20120928
  Serious: Yes (Hospitalization, Other)
  Sender: FDA-Public Use
  Company Number: US-009507513-2011SP046467

PATIENT

DRUGS (3)
  1. NUVARING [Suspect]
     Indication: CONTRACEPTION
     Dates: end: 20081023
  2. LIPITOR [Concomitant]
     Indication: HYPERCHOLESTEROLAEMIA
     Dates: start: 20040101, end: 20081205
  3. NUVARING [Suspect]
     Dates: start: 20071001, end: 20080901

REACTIONS (13)
  - HYPERCOAGULATION [None]
  - ABORTION SPONTANEOUS [None]
  - LUNG NEOPLASM [None]
  - DEEP VEIN THROMBOSIS [None]
  - ANTIPHOSPHOLIPID ANTIBODIES [None]
  - CENTRAL NERVOUS SYSTEM LESION [None]
  - CHOLELITHIASIS [None]
  - UNINTENDED PREGNANCY [None]
  - SUPERIOR SAGITTAL SINUS THROMBOSIS [None]
  - PULMONARY EMBOLISM [None]
  - CAVERNOUS SINUS THROMBOSIS [None]
  - MENTAL DISORDER [None]
  - STATUS MIGRAINOSUS [None]
